FAERS Safety Report 9239573 (Version 1)
Quarter: 2013Q2

REPORT INFORMATION
  Report Type: Spontaneous
  Country: US (occurrence: US)
  Receive Date: 20130418
  Receipt Date: 20130418
  Transmission Date: 20140414
  Serious: No
  Sender: FDA-Public Use
  Company Number: US-SANOFI-AVENTIS-2012SA062671

PATIENT
  Sex: Female
  Weight: 154 kg

DRUGS (3)
  1. LOVENOX [Suspect]
     Indication: DEEP VEIN THROMBOSIS
     Route: 065
  2. COUMADIN [Suspect]
     Route: 065
  3. METFORMIN [Suspect]
     Indication: DIABETES MELLITUS
     Route: 065

REACTIONS (4)
  - Blood glucose increased [Unknown]
  - Injection site bruising [Not Recovered/Not Resolved]
  - Injection site pain [Unknown]
  - Injection site discomfort [Unknown]
